FAERS Safety Report 4662187-5 (Version None)
Quarter: 2005Q2

REPORT INFORMATION
  Report Type: 
  Country: None (occurrence: None)
  Receive Date: 20050516
  Receipt Date: 20050504
  Transmission Date: 20051028
  Serious: Yes (Death, Hospitalization)
  Sender: FDA-Public Use
  Company Number: BE-BRISTOL-MYERS SQUIBB COMPANY-12956819

PATIENT
  Age: 44 Year
  Sex: Male
  Weight: 72 kg

DRUGS (1)
  1. ATAZANAVIR [Suspect]
     Indication: HIV INFECTION

REACTIONS (10)
  - ACUTE RESPIRATORY DISTRESS SYNDROME [None]
  - DIARRHOEA [None]
  - DISSEMINATED INTRAVASCULAR COAGULATION [None]
  - DYSENTERY [None]
  - HYPERCAPNIA [None]
  - NEPHROTIC SYNDROME [None]
  - PYREXIA [None]
  - RENAL FAILURE ACUTE [None]
  - RESPIRATORY FAILURE [None]
  - THROMBOCYTOPENIA [None]
